FAERS Safety Report 9786636 (Version 2)
Quarter: 2014Q1

REPORT INFORMATION
  Report Type: Spontaneous
  Country: IT (occurrence: IT)
  Receive Date: 20131227
  Receipt Date: 20140124
  Transmission Date: 20141002
  Serious: Yes (Other)
  Sender: FDA-Public Use
  Company Number: IT-MYLANLABS-113AS20130581

PATIENT
  Age: 80 Year
  Sex: Male

DRUGS (7)
  1. CITALOPRAM [Suspect]
     Indication: ANXIETY
     Dosage: 1 DF DAILY
     Route: 048
     Dates: start: 20130101, end: 20130923
  2. LANOXIN [Concomitant]
     Indication: PRODUCT USED FOR UNKNOWN INDICATION
     Dosage: 0.0625 MG TABLETS
     Route: 048
  3. FOLINA /00024201/ [Concomitant]
     Indication: PRODUCT USED FOR UNKNOWN INDICATION
  4. FERRO-GRAD [Concomitant]
     Indication: PRODUCT USED FOR UNKNOWN INDICATION
     Route: 048
  5. SPIRIVA [Concomitant]
     Indication: PRODUCT USED FOR UNKNOWN INDICATION
  6. LANSOX [Concomitant]
     Indication: PRODUCT USED FOR UNKNOWN INDICATION
     Route: 048
  7. LOSARTAN [Concomitant]
     Indication: PRODUCT USED FOR UNKNOWN INDICATION
     Route: 048

REACTIONS (3)
  - Anaemia [Recovering/Resolving]
  - Gastrointestinal haemorrhage [Recovering/Resolving]
  - Hyposideraemia [Recovering/Resolving]
